FAERS Safety Report 8518543-8 (Version None)
Quarter: 2012Q3

REPORT INFORMATION
  Report Type: 
  Country: None (occurrence: None)
  Receive Date: 20120718
  Receipt Date: 20120508
  Transmission Date: 20120928
  Serious: No
  Sender: FDA-Public Use
  Company Number: US-BRISTOL-MYERS SQUIBB COMPANY-16580490

PATIENT
  Age: 83 Year
  Sex: Male

DRUGS (2)
  1. XANAX [Concomitant]
  2. COUMADIN [Suspect]
     Indication: HEART VALVE REPLACEMENT
     Dosage: DOSE:5MG,NDC NO:0056-0172-70
     Dates: start: 19840101

REACTIONS (1)
  - INTERNATIONAL NORMALISED RATIO DECREASED [None]
